FAERS Safety Report 12992052 (Version 2)
Quarter: 2016Q4

REPORT INFORMATION
  Report Type: Report from Study
  Country: KE (occurrence: KE)
  Receive Date: 20161201
  Receipt Date: 20161202
  Transmission Date: 20170207
  Serious: Yes (Hospitalization, Other)
  Sender: FDA-Public Use
  Company Number: KE-GILEAD-2016-0246137

PATIENT
  Age: 32 Year
  Sex: Female

DRUGS (9)
  1. RANFERON [Concomitant]
     Indication: ANAEMIA
     Dosage: UNK
     Dates: start: 20161024
  2. DAPSONE. [Concomitant]
     Active Substance: DAPSONE
     Dosage: UNK
     Dates: start: 20160215
  3. EMTRICITABINE/TENOFOVIR DISOPROXIL FUMARATE [Suspect]
     Active Substance: EMTRICITABINE\TENOFOVIR DISOPROXIL FUMARATE
     Indication: KAPOSI^S SARCOMA AIDS RELATED
     Dosage: UNK
     Route: 065
     Dates: start: 20161024
  4. ATAZANAVIR [Concomitant]
     Active Substance: ATAZANAVIR
     Indication: ANTIRETROVIRAL THERAPY
     Dosage: UNK
     Route: 065
     Dates: start: 20161024
  5. EFAVIRENZ/EMTRICITABINE/TENOFOVIR DISOPROXIL FUMARATE [Suspect]
     Active Substance: EFAVIRENZ\EMTRICITABINE\TENOFOVIR DISOPROXIL FUMARATE
     Indication: KAPOSI^S SARCOMA AIDS RELATED
     Dosage: UNK
     Route: 048
     Dates: start: 20160211, end: 201610
  6. ETOPOSIDE PHOSPHATE [Suspect]
     Active Substance: ETOPOSIDE PHOSPHATE
     Indication: KAPOSI^S SARCOMA AIDS RELATED
     Dosage: UNK
     Route: 065
     Dates: start: 2016, end: 2016
  7. CLEXANE [Concomitant]
     Active Substance: ENOXAPARIN SODIUM
  8. PACLITAXEL. [Suspect]
     Active Substance: PACLITAXEL
     Indication: KAPOSI^S SARCOMA AIDS RELATED
     Dosage: 100 MG/M2, ONCE
     Route: 042
     Dates: start: 20160613, end: 20160927
  9. VITAMINS                           /00067501/ [Concomitant]
     Active Substance: VITAMINS
     Dosage: UNK
     Dates: start: 20160215

REACTIONS (4)
  - Drug resistance [Unknown]
  - Immune reconstitution inflammatory syndrome associated tuberculosis [Recovered/Resolved]
  - Oral candidiasis [Unknown]
  - Virologic failure [Unknown]

NARRATIVE: CASE EVENT DATE: 20160916
